FAERS Safety Report 15753429 (Version 1)
Quarter: 2018Q4

REPORT INFORMATION
  Report Type: Spontaneous
  Country: US (occurrence: US)
  Receive Date: 20181222
  Receipt Date: 20181222
  Transmission Date: 20190205
  Serious: No
  Sender: FDA-Public Use
  Company Number: US-MALLINCKRODT-T201801635

PATIENT
  Sex: Male

DRUGS (1)
  1. FENTANYL TRANSDERMAL SYSTEM [Suspect]
     Active Substance: FENTANYL
     Indication: CANCER PAIN
     Dosage: 100 MCG/H (2 PATCHES) EVERY 3 DAYS
     Route: 062
     Dates: start: 201803

REACTIONS (3)
  - Product adhesion issue [Unknown]
  - Skin irritation [Unknown]
  - Insomnia [Unknown]
